FAERS Safety Report 17189392 (Version 3)
Quarter: 2020Q3

REPORT INFORMATION
  Report Type: Report from Study
  Country: None (occurrence: US)
  Receive Date: 20191223
  Receipt Date: 20200821
  Transmission Date: 20201102
  Serious: Yes (Hospitalization, Other)
  Sender: FDA-Public Use
  Company Number: US-ABBVIE-19K-163-3201955-00

PATIENT
  Sex: Male
  Weight: 77.18 kg

DRUGS (13)
  1. ACYCLOVIR. [Concomitant]
     Active Substance: ACYCLOVIR
     Indication: ADJUVANT THERAPY
  2. SILDENAFIL. [Concomitant]
     Active Substance: SILDENAFIL
     Indication: PRODUCT USED FOR UNKNOWN INDICATION
  3. VENCLEXTA [Suspect]
     Active Substance: VENETOCLAX
     Indication: NON-HODGKIN^S LYMPHOMA
     Route: 048
     Dates: start: 20190219, end: 2019
  4. VENCLEXTA [Suspect]
     Active Substance: VENETOCLAX
     Route: 048
  5. PROTONIX [Concomitant]
     Active Substance: PANTOPRAZOLE SODIUM
     Indication: ADJUVANT THERAPY
  6. VENCLEXTA [Suspect]
     Active Substance: VENETOCLAX
     Dosage: 14 DAYS OF 28 DAYS CYCLE
     Route: 048
     Dates: start: 201909, end: 201911
  7. LEVAQUIN [Concomitant]
     Active Substance: LEVOFLOXACIN
     Indication: ADJUVANT THERAPY
  8. VENCLEXTA [Suspect]
     Active Substance: VENETOCLAX
     Route: 048
  9. LEVAQUIN [Concomitant]
     Active Substance: LEVOFLOXACIN
     Indication: INFECTION PROPHYLAXIS
     Dosage: PILL
     Route: 048
     Dates: start: 201812
  10. DUTASTERIDE. [Concomitant]
     Active Substance: DUTASTERIDE
     Indication: PROSTATOMEGALY
  11. VORICONAZOLE. [Concomitant]
     Active Substance: VORICONAZOLE
     Indication: ADJUVANT THERAPY
     Dosage: PILL
     Route: 048
     Dates: start: 201812
  12. ACYCLOVIR. [Concomitant]
     Active Substance: ACYCLOVIR
     Indication: ANTIVIRAL PROPHYLAXIS
     Route: 048
     Dates: start: 201812
  13. COLACE [Concomitant]
     Active Substance: DOCUSATE SODIUM
     Indication: CONSTIPATION PROPHYLAXIS

REACTIONS (11)
  - Sepsis [Recovered/Resolved]
  - Pyrexia [Recovered/Resolved]
  - White blood cell count abnormal [Unknown]
  - Off label use [Unknown]
  - Neutrophil count abnormal [Unknown]
  - Fatigue [Not Recovered/Not Resolved]
  - Pyrexia [Recovered/Resolved]
  - Neutrophil count decreased [Unknown]
  - Infection [Unknown]
  - White blood cell count decreased [Recovered/Resolved]
  - White blood cell count abnormal [Recovered/Resolved]

NARRATIVE: CASE EVENT DATE: 2019
